FAERS Safety Report 7719563-3 (Version None)
Quarter: 2011Q3

REPORT INFORMATION
  Report Type: 
  Country: None (occurrence: None)
  Receive Date: 20110830
  Receipt Date: 20110824
  Transmission Date: 20111222
  Serious: Yes (Other)
  Sender: FDA-Public Use
  Company Number: MX-CTI_01399_2011

PATIENT
  Sex: Female

DRUGS (1)
  1. GEMIFLOXACIN [Suspect]
     Indication: PRODUCT USED FOR UNKNOWN INDICATION
     Dosage: DF

REACTIONS (7)
  - TENDONITIS [None]
  - MYOSITIS [None]
  - SPEECH DISORDER [None]
  - LETHARGY [None]
  - FATIGUE [None]
  - BRADYPHRENIA [None]
  - ASTHENIA [None]
